FAERS Safety Report 12162231 (Version 1)
Quarter: 2016Q1

REPORT INFORMATION
  Report Type: Spontaneous
  Country: US (occurrence: US)
  Receive Date: 20160309
  Receipt Date: 20160309
  Transmission Date: 20160526
  Serious: Yes (Disabling)
  Sender: FDA-Public Use
  Company Number: US-PROCTER_AND_GAMBLE-GS16027047

PATIENT
  Age: 24 Year
  Sex: Female

DRUGS (1)
  1. OLD SPICE FRESHER COLLECTION TIMBER WITH MINT [Suspect]
     Active Substance: ALUMINUM ZIRCONIUM TRICHLOROHYDREX GLY
     Dosage: ONE SWIPE A DAY FOR FIVE CONSECUTIVE DAYS
     Route: 061
     Dates: start: 20160215, end: 20160219

REACTIONS (7)
  - Skin discomfort [Recovering/Resolving]
  - Axillary pain [Recovering/Resolving]
  - Purulent discharge [Recovering/Resolving]
  - Skin infection [Recovering/Resolving]
  - Skin exfoliation [Recovering/Resolving]
  - Chemical burn of skin [Recovering/Resolving]
  - Erythema [Recovering/Resolving]

NARRATIVE: CASE EVENT DATE: 201602
